FAERS Safety Report 9269550 (Version 1)
Quarter: 2013Q2

REPORT INFORMATION
  Report Type: Spontaneous
  Country: US (occurrence: US)
  Receive Date: 20130503
  Receipt Date: 20130503
  Transmission Date: 20140414
  Serious: Yes (Hospitalization)
  Sender: FDA-Public Use
  Company Number: US-ELI_LILLY_AND_COMPANY-US201304001921

PATIENT
  Age: 71 Year
  Sex: Female
  Weight: 56.24 kg

DRUGS (6)
  1. EFFIENT [Suspect]
     Indication: ANGIOPLASTY
     Dosage: UNK
     Dates: start: 20121025
  2. ASPIRIN [Concomitant]
     Dosage: 81 MG, UNK
  3. LISINOPRIL [Concomitant]
  4. METFORMIN [Concomitant]
  5. SIMVASTATIN [Concomitant]
  6. NITROGLYCERIN [Concomitant]

REACTIONS (1)
  - Myocardial infarction [Unknown]
